FAERS Safety Report 25205739 (Version 12)
Quarter: 2025Q4

REPORT INFORMATION
  Report Type: Report from Study
  Country: US (occurrence: US)
  Receive Date: 20250417
  Receipt Date: 20251108
  Transmission Date: 20260118
  Serious: Yes (Hospitalization, Other)
  Sender: UCB
  Company Number: US-UCBSA-2024058410

PATIENT
  Age: 16 Year
  Weight: 52.8 kg

DRUGS (21)
  1. FENFLURAMINE [Suspect]
     Active Substance: FENFLURAMINE
     Indication: Lennox-Gastaut syndrome
     Dosage: 3.6 MILLILITERS AT 7AM, 3.6 MILLILITERS  AT 1 PM, AND 4.8 MILLILITRES AT 9 PM
  2. FENFLURAMINE [Suspect]
     Active Substance: FENFLURAMINE
     Dosage: 3.6 MILLILITERS AT 7AM, 3.6 MILLILITERS AT 1 PM, AND 4.8 MILLILITRES AT 9 PM
  3. FENFLURAMINE [Suspect]
     Active Substance: FENFLURAMINE
     Dosage: 3.6 MILLILITERS AT 7AM, 3.6 MILLILITERS AT 1 PM, AND 4.8 MILLILITRES AT 9 PM
  4. FENFLURAMINE [Suspect]
     Active Substance: FENFLURAMINE
     Dosage: 3.6 MILLILITERS AT 7AM, 3.6 MILLILITERS AT 1 PM, AND 4.8 MILLILITRES AT 9 PM
  5. FENFLURAMINE [Suspect]
     Active Substance: FENFLURAMINE
     Dosage: 2.5 ML BID FOR 7 DAYS, 4.6 ML BID FOR 7 DAYS THEN 5.9 ML BID
  6. FENFLURAMINE [Suspect]
     Active Substance: FENFLURAMINE
     Dosage: 3.6 ML BY MOUTH TWO TIMES A DAY AND 4.8 ML ONE TIME EACH DAY.
  7. FENFLURAMINE [Suspect]
     Active Substance: FENFLURAMINE
     Dosage: 0.44 MG/KG/DAY TO A TOTAL OF 26.4 MG/DAY
  8. FENFLURAMINE [Suspect]
     Active Substance: FENFLURAMINE
     Dosage: 3.6 ML AT 7 AM, 3.6 ML AT 1 PM AND 4.8 ML AT 9 PM
  9. FENFLURAMINE [Suspect]
     Active Substance: FENFLURAMINE
     Dosage: 10.56MG ONCE DAILY AND 7.92MG TWICE DAILY
  10. FENFLURAMINE [Suspect]
     Active Substance: FENFLURAMINE
     Dosage: 14.80 MILLILITER
  11. FENFLURAMINE [Suspect]
     Active Substance: FENFLURAMINE
     Dosage: 3.6 ML IN THE MORNING, 3.6 ML IN THE AFTERNOON AND 4.8 ML AT BEDTIME
  12. FENFLURAMINE [Suspect]
     Active Substance: FENFLURAMINE
     Dosage: TAKE 3.6 ML BY MOUTH TWO TIMES A DAY AND 4.8 ML ONE TIME EACH DAY
  13. FENFLURAMINE [Suspect]
     Active Substance: FENFLURAMINE
     Dosage: 3.6 ML IN THE MORNING, 3.6 ML IN THE AFTERNOON AND 4.8 ML AT BEDTIME
  14. FENFLURAMINE [Suspect]
     Active Substance: FENFLURAMINE
     Dosage: 6 MILLILITER, 2X/DAY (BID)
  15. FENFLURAMINE [Suspect]
     Active Substance: FENFLURAMINE
     Dosage: 0.5 MILLIGRAM/KILOGRAM/DAY (26.4 MILLIGRAM/DAY)
  16. BRIVARACETAM [Concomitant]
     Active Substance: BRIVARACETAM
     Indication: Product used for unknown indication
  17. CLOBAZAM [Concomitant]
     Active Substance: CLOBAZAM
     Indication: Product used for unknown indication
  18. LACOSAMIDE [Concomitant]
     Active Substance: LACOSAMIDE
     Indication: Product used for unknown indication
  19. OXCARBAZEPINE [Concomitant]
     Active Substance: OXCARBAZEPINE
     Indication: Product used for unknown indication
  20. SODIUM CHLORIDE [Concomitant]
     Active Substance: SODIUM CHLORIDE
     Indication: Product used for unknown indication
  21. MIDAZOLAM [Concomitant]
     Active Substance: MIDAZOLAM
     Indication: Product used for unknown indication

REACTIONS (6)
  - Hospitalisation [Not Recovered/Not Resolved]
  - Status epilepticus [Recovering/Resolving]
  - Tricuspid valve incompetence [Recovering/Resolving]
  - Respiratory failure [Unknown]
  - Urea cycle disorder [Not Recovered/Not Resolved]
  - Off label use [Unknown]
